FAERS Safety Report 5081829-6 (Version None)
Quarter: 2006Q3

REPORT INFORMATION
  Report Type: 
  Country: None (occurrence: None)
  Receive Date: 20060816
  Receipt Date: 20060807
  Transmission Date: 20061208
  Serious: Yes (Death, Hospitalization)
  Sender: FDA-Public Use
  Company Number: IT-BRISTOL-MYERS SQUIBB COMPANY-13472949

PATIENT
  Age: 74 Year
  Sex: Female

DRUGS (7)
  1. ENDOXAN [Suspect]
     Indication: ARTERITIS
     Route: 048
     Dates: start: 20060511, end: 20060623
  2. MEDROL [Concomitant]
  3. TENORMIN [Concomitant]
  4. ASPIRIN [Concomitant]
  5. ESOMEPRAZOLE MAGNESIUM [Concomitant]
  6. SINVACOR [Concomitant]
  7. FOSAMAX [Concomitant]

REACTIONS (10)
  - BLOOD PRESSURE DECREASED [None]
  - COMA [None]
  - DEPRESSED LEVEL OF CONSCIOUSNESS [None]
  - DYSPNOEA [None]
  - HEPATIC FAILURE [None]
  - HYPERTHERMIA [None]
  - JAUNDICE [None]
  - METABOLIC ACIDOSIS [None]
  - RASH [None]
  - SEPTIC SHOCK [None]
